FAERS Safety Report 8379707-X (Version None)
Quarter: 2012Q2

REPORT INFORMATION
  Report Type: 
  Country: None (occurrence: None)
  Receive Date: 20120523
  Receipt Date: 20120511
  Transmission Date: 20120825
  Serious: Yes (Other)
  Sender: FDA-Public Use
  Company Number: US-JNJFOC-20120513025

PATIENT
  Sex: Female
  Weight: 90.72 kg

DRUGS (1)
  1. ORTHO TRI-CYCLEN LO [Suspect]
     Indication: CONTRACEPTION
     Route: 048
     Dates: start: 20120415

REACTIONS (4)
  - MENSTRUATION DELAYED [None]
  - NAUSEA [None]
  - SECRETION DISCHARGE [None]
  - URINARY TRACT INFECTION [None]
